FAERS Safety Report 24816956 (Version 1)
Quarter: 2025Q1

REPORT INFORMATION
  Report Type: Spontaneous
  Country: US (occurrence: US)
  Receive Date: 20250108
  Receipt Date: 20250108
  Transmission Date: 20250408
  Serious: No
  Sender: JOHNSON AND JOHNSON
  Company Number: US-JNJFOC-20241209031

PATIENT
  Age: 64 Year
  Sex: Female

DRUGS (1)
  1. SPRAVATO [Suspect]
     Active Substance: ESKETAMINE
     Indication: Product used for unknown indication
     Dosage: 3 NASAL CANNISTERS
     Route: 065
     Dates: start: 20240821, end: 20241004

REACTIONS (14)
  - Cognitive disorder [Unknown]
  - Dissociation [Unknown]
  - Feeling of despair [Unknown]
  - Frustration tolerance decreased [Unknown]
  - Fear [Unknown]
  - Depression [Unknown]
  - Drug ineffective [Unknown]
  - Psychiatric symptom [Unknown]
  - Refusal of treatment by patient [Unknown]
  - Intentional dose omission [Unknown]
  - Muscle spasms [Unknown]
  - Injury [Unknown]
  - Therapy cessation [Unknown]
  - Surgery [Unknown]
